FAERS Safety Report 13190491 (Version 1)
Quarter: 2017Q1

REPORT INFORMATION
  Report Type: Other
  Country: ZA (occurrence: ZA)
  Receive Date: 20170206
  Receipt Date: 20170206
  Transmission Date: 20170428
  Serious: Yes (Hospitalization)
  Sender: FDA-Public Use
  Company Number: ZA-ALSI-201700033

PATIENT

DRUGS (1)
  1. NITROUS OXIDE. [Suspect]
     Active Substance: NITROUS OXIDE
     Indication: DRUG ABUSE

REACTIONS (4)
  - Spinal cord disorder [Unknown]
  - Drug abuse [Unknown]
  - Lhermitte^s sign [Unknown]
  - Neuropathy peripheral [Unknown]
